FAERS Safety Report 17324470 (Version 2)
Quarter: 2020Q1

REPORT INFORMATION
  Report Type: Spontaneous
  Country: SE (occurrence: SE)
  Receive Date: 20200127
  Receipt Date: 20200129
  Transmission Date: 20200409
  Serious: Yes (Hospitalization)
  Sender: FDA-Public Use
  Company Number: SE-MYLANLABS-2020M1008535

PATIENT
  Sex: Female

DRUGS (2)
  1. LERGIGAN (PROMETHAZINE HYDROCHLORIDE) [Suspect]
     Active Substance: PROMETHAZINE HYDROCHLORIDE
     Indication: PRODUCT USED FOR UNKNOWN INDICATION
     Dosage: 2500 MILLIGRAM/^7 ST LERGIGAN^
     Route: 048
     Dates: start: 20180822, end: 20180822
  2. MELATONIN [Suspect]
     Active Substance: MELATONIN
     Indication: PRODUCT USED FOR UNKNOWN INDICATION
     Dosage: UNK (7 MELATONIN)
     Route: 048
     Dates: start: 20180822, end: 20180822

REACTIONS (6)
  - Intentional self-injury [Unknown]
  - Intentional overdose [Unknown]
  - Palpitations [Unknown]
  - Fatigue [Unknown]
  - Dyspnoea [Unknown]
  - Somnolence [Unknown]

NARRATIVE: CASE EVENT DATE: 20180822
